FAERS Safety Report 18780997 (Version 1)
Quarter: 2021Q1

REPORT INFORMATION
  Report Type: Spontaneous
  Country: US (occurrence: US)
  Receive Date: 20210123
  Receipt Date: 20210123
  Transmission Date: 20210419
  Serious: Yes (Hospitalization)
  Sender: FDA-Public Use
  Company Number: None

PATIENT
  Sex: Female

DRUGS (2)
  1. ACETAMINOPHEN ++325MG UNKNOWN [Suspect]
     Active Substance: ACETAMINOPHEN
     Indication: HYPOGAMMAGLOBULINAEMIA
     Dosage: ?          OTHER FREQUENCY:AS NEEDED;?
     Route: 048
     Dates: start: 202011
  2. ALLERGY ++ (DIPHENHYDRAMINE) 25MG NONE [Suspect]
     Active Substance: DIPHENHYDRAMINE
     Indication: IMMUNODEFICIENCY COMMON VARIABLE
     Dosage: ?          OTHER FREQUENCY:AS NEEDED;?
     Route: 048
     Dates: start: 202011

REACTIONS (8)
  - COVID-19 [None]
  - Dyspnoea [None]
  - Fatigue [None]
  - Cough [None]
  - Urticaria [None]
  - Chills [None]
  - Pyrexia [None]
  - Chest pain [None]
